FAERS Safety Report 5396901-0 (Version None)
Quarter: 2007Q3

REPORT INFORMATION
  Report Type: 
  Country: None (occurrence: None)
  Receive Date: 20070725
  Receipt Date: 20070531
  Transmission Date: 20080115
  Serious: Yes (Hospitalization, Other)
  Sender: FDA-Public Use
  Company Number: US-PURDUE-USA_2003_0008823

PATIENT
  Age: 41 Year
  Sex: Male
  Weight: 63 kg

DRUGS (9)
  1. VALIUM [Concomitant]
     Indication: DRUG USE FOR UNKNOWN INDICATION
     Dosage: 5 MG, BID
     Route: 048
  2. PRILOSEC [Concomitant]
     Indication: DRUG USE FOR UNKNOWN INDICATION
     Dosage: 20 MG, DAILY
     Route: 048
  3. VIOXX [Concomitant]
     Indication: DRUG USE FOR UNKNOWN INDICATION
     Dosage: 25 MG, DAILY
     Route: 048
  4. ZOLOFT [Concomitant]
     Indication: DRUG USE FOR UNKNOWN INDICATION
     Dosage: 50 MG, DAILY
     Route: 048
  5. OXYCODONE HCL [Concomitant]
     Indication: PAIN
     Dosage: UNK MG, Q4H
     Route: 065
  6. OXYCONTIN [Suspect]
     Indication: PAIN
     Dosage: 40 MG, Q12H
     Route: 048
  7. OXYCONTIN [Suspect]
     Dosage: UNK MG, Q4H
     Route: 065
  8. OXYCONTIN [Suspect]
     Dosage: 60 MG, BID
  9. ROXICODONE [Concomitant]
     Indication: DRUG USE FOR UNKNOWN INDICATION
     Dosage: 15 MG, PRN
     Route: 048

REACTIONS (36)
  - ABDOMINAL PAIN LOWER [None]
  - ABDOMINAL PAIN UPPER [None]
  - ACTIVITIES OF DAILY LIVING IMPAIRED [None]
  - ANOREXIA [None]
  - ASTHENIA [None]
  - CHILLS [None]
  - CONFUSIONAL STATE [None]
  - CONSTIPATION [None]
  - DEPRESSION [None]
  - DIARRHOEA [None]
  - DRUG ABUSER [None]
  - DRUG DEPENDENCE [None]
  - DRUG TOLERANCE [None]
  - DRUG WITHDRAWAL SYNDROME [None]
  - DYSURIA [None]
  - FATIGUE [None]
  - HEADACHE [None]
  - INADEQUATE ANALGESIA [None]
  - INFECTION PARASITIC [None]
  - INSOMNIA [None]
  - IRRITABILITY [None]
  - LEUKOCYTOSIS [None]
  - MALAISE [None]
  - MENTAL DISORDER [None]
  - MICTURITION URGENCY [None]
  - NAUSEA [None]
  - NERVOUSNESS [None]
  - PAIN [None]
  - POLLAKIURIA [None]
  - PROSTATITIS [None]
  - PYREXIA [None]
  - SUICIDAL IDEATION [None]
  - TREMOR [None]
  - URINARY TRACT INFECTION [None]
  - VOMITING [None]
  - WEIGHT DECREASED [None]
